FAERS Safety Report 5146019-7 (Version None)
Quarter: 2006Q4

REPORT INFORMATION
  Report Type: 
  Country: None (occurrence: None)
  Receive Date: 20061108
  Receipt Date: 20061103
  Transmission Date: 20070319
  Serious: Yes (Hospitalization)
  Sender: FDA-Public Use
  Company Number: CH-AVENTIS-200621415GDDC

PATIENT
  Age: 93 Year
  Sex: Female

DRUGS (5)
  1. AMARYL [Suspect]
     Route: 048
     Dates: end: 20060515
  2. ENATEC [Suspect]
     Route: 048
     Dates: end: 20060515
  3. LASILACTON [Suspect]
     Dosage: DOSE: 50 MG/20 MG
     Route: 048
     Dates: start: 20060515
  4. DIGOXIN STREULI [Concomitant]
     Route: 048
     Dates: end: 20060515
  5. PLAVIX [Concomitant]
     Route: 048

REACTIONS (8)
  - ESCHERICHIA INFECTION [None]
  - HYPERKALAEMIA [None]
  - HYPOGLYCAEMIA [None]
  - IATROGENIC INJURY [None]
  - RENAL FAILURE [None]
  - RENAL IMPAIRMENT [None]
  - SIMPLE PARTIAL SEIZURES [None]
  - URINARY RETENTION [None]
